FAERS Safety Report 5825220-0 (Version None)
Quarter: 2008Q3

REPORT INFORMATION
  Report Type: 
  Country: None (occurrence: None)
  Receive Date: 20080729
  Receipt Date: 20080722
  Transmission Date: 20090109
  Serious: Yes (Death, Other)
  Sender: FDA-Public Use
  Company Number: PHEH2008US05463

PATIENT
  Sex: Male
  Weight: 49.887 kg

DRUGS (4)
  1. GLEEVEC [Suspect]
     Indication: CHRONIC MYELOID LEUKAEMIA
     Dosage: UNK MG, QD
     Route: 048
  2. GLEEVEC [Suspect]
     Dosage: 200 MG, QD
     Route: 048
     Dates: start: 20050801, end: 20080301
  3. SPIRONOLACTONE [Concomitant]
  4. METOPROLOL TARTRATE [Concomitant]

REACTIONS (8)
  - ARRHYTHMIA [None]
  - CARDIAC ARREST [None]
  - DEHYDRATION [None]
  - ELECTROLYTE IMBALANCE [None]
  - GENERAL PHYSICAL HEALTH DETERIORATION [None]
  - IMMUNODEFICIENCY [None]
  - SKIN EXFOLIATION [None]
  - SKIN LESION [None]
